FAERS Safety Report 5787444-0 (Version None)
Quarter: 2008Q2

REPORT INFORMATION
  Report Type: 
  Country: None (occurrence: None)
  Receive Date: 20080625
  Receipt Date: 20080623
  Transmission Date: 20081010
  Serious: Yes (Other)
  Sender: FDA-Public Use
  Company Number: US-BRISTOL-MYERS SQUIBB COMPANY-14237614

PATIENT
  Age: 57 Year
  Sex: Female

DRUGS (10)
  1. CYTOXAN [Suspect]
     Indication: BREAST CANCER
     Dosage: CYCLE1:18MAR08-18MAR08,DUR:1DAY. CYCLE2:08APR08-08APR08,DUR:1DAY. CYCLE3:28APR08-28APR08,DUR:1DAY.
     Dates: start: 20080520, end: 20080520
  2. TAXOTERE [Suspect]
     Indication: BREAST CANCER
     Dosage: CYCLE1:146MG,IV,18MAR08-18MAR08. CYCLE2:146MG,IV,08APR08-08APR08. CYCLE3:146MG,IV,28APR08-28APR08.
     Route: 042
     Dates: start: 20080520, end: 20080520
  3. ALOXI [Concomitant]
  4. DECADRON [Concomitant]
  5. ATIVAN [Concomitant]
  6. EMEND [Concomitant]
  7. PLAVIX [Concomitant]
  8. PROTONIX [Concomitant]
  9. HYDROCHLOROTHIAZIDE [Concomitant]
  10. POTASSIUM CHLORIDE [Concomitant]

REACTIONS (3)
  - OEDEMA PERIPHERAL [None]
  - PAIN IN EXTREMITY [None]
  - PHLEBITIS [None]
